FAERS Safety Report 8552946-0 (Version None)
Quarter: 2012Q3

REPORT INFORMATION
  Report Type: 
  Country: None (occurrence: None)
  Receive Date: 20120731
  Receipt Date: 20120728
  Transmission Date: 20120928
  Serious: Yes (Death, Hospitalization, Other)
  Sender: FDA-Public Use
  Company Number: PHHY2012HN065365

PATIENT
  Sex: Female

DRUGS (1)
  1. IMATINIB MESYLATE [Suspect]
     Indication: CHRONIC MYELOID LEUKAEMIA
     Dosage: 400 MG, DAILY
     Route: 048
     Dates: start: 20111201

REACTIONS (15)
  - DEATH [None]
  - VOMITING [None]
  - ABDOMINAL DISTENSION [None]
  - SPLENOMEGALY [None]
  - PYREXIA [None]
  - SEPTIC SHOCK [None]
  - HAEMOGLOBIN DECREASED [None]
  - DIARRHOEA [None]
  - NAUSEA [None]
  - MALAISE [None]
  - WHITE BLOOD CELL COUNT INCREASED [None]
  - PLATELET COUNT DECREASED [None]
  - BLAST CELLS PRESENT [None]
  - FATIGUE [None]
  - WEIGHT DECREASED [None]
